FAERS Safety Report 12075541 (Version 2)
Quarter: 2016Q2

REPORT INFORMATION
  Report Type: Spontaneous
  Country: US (occurrence: US)
  Receive Date: 20160213
  Receipt Date: 20160406
  Transmission Date: 20160815
  Serious: No
  Sender: FDA-Public Use
  Company Number: US-009507513-1602USA006430

PATIENT
  Age: 74 Year
  Sex: Female

DRUGS (2)
  1. VASCULERA [Concomitant]
     Dosage: UNK
  2. ZETIA [Suspect]
     Active Substance: EZETIMIBE
     Indication: BLOOD CHOLESTEROL
     Dosage: 10 MG, ONCE A DAY
     Route: 048
     Dates: start: 201510

REACTIONS (1)
  - Alopecia [Not Recovered/Not Resolved]
